FAERS Safety Report 25933861 (Version 1)
Quarter: 2025Q4

REPORT INFORMATION
  Report Type: Spontaneous
  Country: EU (occurrence: EU)
  Receive Date: 20251017
  Receipt Date: 20251017
  Transmission Date: 20260117
  Serious: Yes (Other)
  Sender: AMGEN
  Company Number: EU-AMGEN-ROUSP2025204621

PATIENT
  Age: 62 Year
  Sex: Male

DRUGS (4)
  1. VECTIBIX [Suspect]
     Active Substance: PANITUMUMAB
     Indication: Colon neoplasm
     Dosage: 6 MILLIGRAM/KILOGRAM
     Route: 065
  2. IRINOTECAN [Suspect]
     Active Substance: IRINOTECAN
     Indication: Colon neoplasm
     Dosage: 180 MILLIGRAM/SQ. METER
     Route: 065
  3. LEUCOVORIN [Suspect]
     Active Substance: LEUCOVORIN\LEUCOVORIN CALCIUM
     Indication: Colon neoplasm
     Dosage: 400 MILLIGRAM/SQ. METER
     Route: 065
  4. FLUOROURACIL [Suspect]
     Active Substance: FLUOROURACIL
     Indication: Colon neoplasm
     Dosage: BOLUS 400 MG/M^2, 5-FU PIV46H 2400 MG/M^2), Q2W
     Route: 065

REACTIONS (2)
  - Thrombocytopenia [Recovering/Resolving]
  - Skin toxicity [Recovering/Resolving]
